FAERS Safety Report 7685591-X (Version None)
Quarter: 2011Q3

REPORT INFORMATION
  Report Type: 
  Country: None (occurrence: None)
  Receive Date: 20110816
  Receipt Date: 20110811
  Transmission Date: 20111222
  Serious: Yes (Other)
  Sender: FDA-Public Use
  Company Number: JP-PFIZER INC-2011179080

PATIENT
  Age: 71 Year

DRUGS (5)
  1. LYRICA [Suspect]
     Dosage: 50MG/DAY
     Route: 048
     Dates: start: 20110713, end: 20110721
  2. METHYCOBAL [Concomitant]
     Dosage: UNK
     Dates: start: 20110719, end: 20110721
  3. ETODOLAC [Concomitant]
     Dosage: UNK
     Route: 048
     Dates: start: 20110629, end: 20110703
  4. VOLTAREN [Suspect]
     Dosage: 75MG/DAY
     Route: 048
     Dates: start: 20110713, end: 20110721
  5. FAMOTIDINE [Concomitant]
     Dosage: UNK
     Route: 048
     Dates: start: 20110629, end: 20110721

REACTIONS (1)
  - HEPATIC FUNCTION ABNORMAL [None]
